FAERS Safety Report 25427752 (Version 1)
Quarter: 2025Q2

REPORT INFORMATION
  Report Type: Spontaneous
  Country: EG (occurrence: EG)
  Receive Date: 20250612
  Receipt Date: 20250612
  Transmission Date: 20250717
  Serious: Yes (Life-Threatening, Hospitalization)
  Sender: MACLEODS
  Company Number: EG-MACLEODS PHARMA-MAC2025053461

PATIENT

DRUGS (7)
  1. MEMANTINE [Suspect]
     Active Substance: MEMANTINE
     Indication: Dementia
     Route: 065
  2. MEMANTINE [Suspect]
     Active Substance: MEMANTINE
     Indication: Bipolar disorder
  3. QUETIAPINE [Suspect]
     Active Substance: QUETIAPINE
     Indication: Bipolar disorder
     Route: 065
  4. QUETIAPINE [Suspect]
     Active Substance: QUETIAPINE
     Indication: Dementia
     Route: 065
  5. DONEPEZIL [Suspect]
     Active Substance: DONEPEZIL
     Indication: Bipolar disorder
     Route: 065
  6. DONEPEZIL [Suspect]
     Active Substance: DONEPEZIL
     Indication: Dementia
  7. TOZINAMERAN [Suspect]
     Active Substance: TOZINAMERAN
     Indication: COVID-19 immunisation

REACTIONS (6)
  - Head injury [Recovering/Resolving]
  - Periorbital swelling [Recovering/Resolving]
  - Ecchymosis [Recovering/Resolving]
  - Fall [Unknown]
  - Face injury [Recovering/Resolving]
  - Neuroleptic malignant syndrome [Recovered/Resolved]
